FAERS Safety Report 7631238-8 (Version None)
Quarter: 2011Q3

REPORT INFORMATION
  Report Type: 
  Country: None (occurrence: None)
  Receive Date: 20110725
  Receipt Date: 20110719
  Transmission Date: 20111222
  Serious: Yes (Death, Other)
  Sender: FDA-Public Use
  Company Number: FR-AMGEN-FRASP2011007831

PATIENT
  Age: 47 Year
  Sex: Male

DRUGS (5)
  1. IRINOTECAN HCL [Concomitant]
     Dosage: UNK UNK, Q2WK
  2. NEULASTA [Suspect]
     Indication: CHEMOTHERAPY
  3. OXALIPLATIN [Concomitant]
     Dosage: UNK UNK, Q2WK
  4. LEUCOVORIN CALCIUM [Concomitant]
     Dosage: UNK UNK, Q2WK
  5. 5-FU                               /00098801/ [Concomitant]
     Dosage: UNK UNK, Q2WK

REACTIONS (4)
  - LEUKOCYTOSIS [None]
  - THROMBOSIS MESENTERIC VESSEL [None]
  - NEOPLASM MALIGNANT [None]
  - INFLAMMATION [None]
